FAERS Safety Report 10970290 (Version 2)
Quarter: 2015Q2

REPORT INFORMATION
  Report Type: Spontaneous
  Country: US (occurrence: US)
  Receive Date: 20150331
  Receipt Date: 20150507
  Transmission Date: 20150821
  Serious: Yes (Other)
  Sender: FDA-Public Use
  Company Number: US-AMGEN-USASP2015028671

PATIENT
  Age: 66 Year
  Sex: Female

DRUGS (2)
  1. AMBIEN [Suspect]
     Active Substance: ZOLPIDEM TARTRATE
     Indication: PRODUCT USED FOR UNKNOWN INDICATION
  2. PROLIA [Suspect]
     Active Substance: DENOSUMAB
     Indication: PRODUCT USED FOR UNKNOWN INDICATION
     Dosage: UNK
     Route: 065
     Dates: start: 201409

REACTIONS (7)
  - Wrist fracture [Recovering/Resolving]
  - Postoperative adhesion [Unknown]
  - Humerus fracture [Recovering/Resolving]
  - Scar [Unknown]
  - Impaired healing [Unknown]
  - Fall [Unknown]
  - Encapsulation reaction [Unknown]

NARRATIVE: CASE EVENT DATE: 20140930
